FAERS Safety Report 8270434 (Version 4)
Quarter: 2012Q4

REPORT INFORMATION
  Report Type: 
  Country: US (occurrence: US)
  Receive Date: 20111201
  Receipt Date: 20121029
  Transmission Date: 20130627
  Serious: Yes (Hospitalization, Other)
  Sender: FDA-Public Use
  Company Number: US-BAYER-2011-112498

PATIENT
  Age: 43 Year
  Sex: Female
  Weight: 158.73 kg

DRUGS (18)
  1. YAZ [Suspect]
     Indication: HAEMORRHAGE NOS
     Dosage: UNK
     Dates: start: 2009, end: 2010
  2. TEGRETOL [Concomitant]
     Indication: SEIZURES
     Dosage: 400 mg, BID
  3. TEGRETOL [Concomitant]
     Indication: SEIZURES
     Dosage: 40 mg, UNK
     Route: 048
     Dates: start: 20090604, end: 20091030
  4. GABAPENTIN [Concomitant]
     Dosage: UNK UNK, BID
  5. DEPO-PROVERA [Concomitant]
     Dosage: UNK
     Dates: end: 20091001
  6. TYLENOL #3 [Concomitant]
     Dosage: UNK
     Route: 048
     Dates: start: 20091030
  7. OMEGA 3 FATTY ACIDS [Concomitant]
  8. ZOCOR [Concomitant]
  9. METFORMIN [Concomitant]
     Dosage: 500 mg, BID
     Route: 048
     Dates: start: 20090604, end: 20091001
  10. ULTRAM [Concomitant]
     Dosage: UNK
     Route: 048
     Dates: start: 20090604, end: 20091030
  11. LOVAZA FISH OIL [Concomitant]
     Indication: CHOLESTEROL LEVELS RAISED
     Dosage: 1 g, daily
     Route: 048
  12. SYMBICORT [Concomitant]
     Indication: ASTHMA
     Dosage: UNK UNK, PRN
  13. ALBUTEROL [Concomitant]
     Indication: ASTHMA
     Dosage: UNK UNK, PRN
     Route: 045
  14. ADVAIR [Concomitant]
     Indication: ASTHMA
     Dosage: UNK UNK, PRN
     Route: 045
  15. NAPROSYN [Concomitant]
     Indication: HEADACHE
     Dosage: UNK
     Route: 048
     Dates: start: 2009, end: 2011
  16. LIPITOR [Concomitant]
     Indication: DYSLIPIDEMIA
  17. PERCOCET [Concomitant]
     Dosage: UNK
     Dates: end: 2011
  18. TEGRETOL XR [Concomitant]
     Indication: SEIZURES

REACTIONS (8)
  - Pulmonary embolism [None]
  - Thrombosis [None]
  - Transient ischaemic attack [None]
  - Cerebrovascular accident [None]
  - Myocardial infarction [None]
  - Injury [None]
  - Pain [None]
  - Emotional distress [None]
